FAERS Safety Report 16050130 (Version 1)
Quarter: 2019Q1

REPORT INFORMATION
  Report Type: Spontaneous
  Country: IT (occurrence: IT)
  Receive Date: 20190308
  Receipt Date: 20190308
  Transmission Date: 20190418
  Serious: Yes (Other)
  Sender: FDA-Public Use
  Company Number: IT-SA-2019SA058679

PATIENT
  Age: 49 Year
  Sex: Female

DRUGS (5)
  1. ZANTIPRES [Concomitant]
     Active Substance: ZOFENOPRIL
  2. ARAVA [Suspect]
     Active Substance: LEFLUNOMIDE
     Indication: RHEUMATOID ARTHRITIS
     Dosage: 20 MG, QD
     Route: 048
     Dates: start: 20181012
  3. DIBASE [Concomitant]
     Active Substance: CHOLECALCIFEROL
  4. PREGABALIN. [Concomitant]
     Active Substance: PREGABALIN
  5. LANSOX [Concomitant]
     Active Substance: LANSOPRAZOLE

REACTIONS (1)
  - Thyroiditis subacute [Recovering/Resolving]

NARRATIVE: CASE EVENT DATE: 20190130
